FAERS Safety Report 6936081-0 (Version None)
Quarter: 2010Q3

REPORT INFORMATION
  Report Type: 
  Country: None (occurrence: None)
  Receive Date: 20100819
  Receipt Date: 20100819
  Transmission Date: 20110219
  Serious: No
  Sender: FDA-Public Use
  Company Number: None

PATIENT
  Age: 27 Year
  Sex: Female
  Weight: 98.9 kg

DRUGS (1)
  1. MORPHINE [Suspect]
     Indication: PAIN
     Dosage: 10MG ONE TIME IM
     Route: 030
     Dates: start: 20100812, end: 20100812

REACTIONS (7)
  - BACK PAIN [None]
  - CHEST DISCOMFORT [None]
  - CHEST PAIN [None]
  - DISCOMFORT [None]
  - FEELING HOT [None]
  - FLUSHING [None]
  - RESPIRATORY RATE INCREASED [None]
